FAERS Safety Report 9524780 (Version 1)
Quarter: 2013Q3

REPORT INFORMATION
  Report Type: Report from Study
  Country: KR (occurrence: KR)
  Receive Date: 20130916
  Receipt Date: 20130916
  Transmission Date: 20140515
  Serious: Yes (Hospitalization)
  Sender: FDA-Public Use
  Company Number: KR-SANOFI-AVENTIS-2013SA046309

PATIENT
  Age: 75 Year
  Sex: Female
  Weight: 52 kg

DRUGS (12)
  1. LANTUS [Suspect]
     Indication: DIABETES MELLITUS
     Dosage: DOSE:54 UNIT(S)
     Route: 058
     Dates: start: 20130504
  2. LANTUS [Suspect]
     Indication: DIABETES MELLITUS
     Dosage: DOSE:54 UNIT(S)
     Route: 058
     Dates: start: 20130503, end: 20130503
  3. LANTUS [Suspect]
     Indication: DIABETES MELLITUS
     Dosage: DOSE:54 UNIT(S)
     Route: 058
     Dates: start: 20110105, end: 20130502
  4. LANTUS [Suspect]
     Indication: DIABETES MELLITUS
     Dosage: DOSE:32 UNIT(S)
     Route: 048
  5. LANTUS [Suspect]
     Indication: DIABETES MELLITUS
     Dosage: DOSE:60 UNIT(S)
     Route: 058
  6. HUMALOG [Suspect]
     Indication: DIABETES MELLITUS
     Dosage: 10-10-10 DOSE:10 UNIT(S)
     Route: 058
     Dates: end: 20130502
  7. HUMALOG [Suspect]
     Indication: DIABETES MELLITUS
     Dosage: 10-10-0-0-10 DOSE:10 UNIT(S)
     Route: 058
     Dates: start: 20130503, end: 20130503
  8. HUMALOG [Suspect]
     Indication: DIABETES MELLITUS
     Dosage: DOSE:16 UNIT(S)
     Route: 058
     Dates: start: 20130621, end: 20130712
  9. HUMALOG [Suspect]
     Indication: DIABETES MELLITUS
     Dosage: 10-10-10 DOSE:10 UNIT(S)
     Route: 058
     Dates: start: 20130504, end: 20130620
  10. HUMALOG [Suspect]
     Indication: DIABETES MELLITUS
     Dosage: DOSE:14 UNIT(S)
     Route: 058
     Dates: start: 20130713
  11. HUMALOG [Suspect]
     Indication: DIABETES MELLITUS
     Dosage: DOSE:8 UNIT(S)
     Route: 058
  12. DIAMICRON MR [Concomitant]
     Indication: DIABETES MELLITUS
     Route: 048
     Dates: start: 20110105

REACTIONS (4)
  - Localised infection [Recovered/Resolved]
  - Dry mouth [Unknown]
  - Hyperglycaemia [Recovered/Resolved]
  - Overdose [Unknown]
